FAERS Safety Report 7033942-1 (Version None)
Quarter: 2010Q4

REPORT INFORMATION
  Report Type: 
  Country: None (occurrence: None)
  Receive Date: 20101007
  Receipt Date: 20100928
  Transmission Date: 20110411
  Serious: Yes (Hospitalization)
  Sender: FDA-Public Use
  Company Number: US-MERCK-1009USA03318

PATIENT
  Age: 46 Year
  Sex: Female

DRUGS (1)
  1. JANUMET [Suspect]
     Indication: DIABETES MELLITUS
     Route: 065
     Dates: start: 20100905, end: 20100901

REACTIONS (2)
  - DYSPHAGIA [None]
  - DYSPNOEA [None]
